FAERS Safety Report 8812759 (Version 2)
Quarter: 2012Q4

REPORT INFORMATION
  Report Type: 
  Country: GB (occurrence: GB)
  Receive Date: 20120927
  Receipt Date: 20121121
  Transmission Date: 20130627
  Serious: Yes (Hospitalization, Other)
  Sender: FDA-Public Use
  Company Number: GB-WATSON-2012-16564

PATIENT
  Age: 81 Year
  Sex: Male
  Weight: 63 kg

DRUGS (1)
  1. GABAPENTIN (UNKNOWN) [Suspect]
     Indication: DIABETIC NEUROPATHY
     Dosage: 100 mg, tid
     Route: 048
     Dates: start: 20110630, end: 20110630

REACTIONS (12)
  - Thinking abnormal [Not Recovered/Not Resolved]
  - Victim of crime [Not Recovered/Not Resolved]
  - Speech disorder [Unknown]
  - Mental impairment [Unknown]
  - Amnesia [Unknown]
  - Confusional state [Recovered/Resolved]
  - Fatigue [Recovered/Resolved]
  - Vomiting [Recovered/Resolved]
  - Pyrexia [Recovered/Resolved]
  - Bradycardia [Recovered/Resolved]
  - Hypotension [Recovered/Resolved]
  - Headache [Recovered/Resolved]
